FAERS Safety Report 6937669 (Version 14)
Quarter: 2012Q4

REPORT INFORMATION
  Report Type: 
  Country: US (occurrence: US)
  Receive Date: 20090313
  Receipt Date: 20121109
  Transmission Date: 20130627
  Serious: Yes (Hospitalization, Other)
  Sender: FDA-Public Use
  Company Number: PHEH2009US02408

PATIENT
  Age: 77 Year
  Sex: Female

DRUGS (27)
  1. AREDIA [Suspect]
     Indication: METASTASES TO BONE
     Dates: end: 200602
  2. FASLODEX [Concomitant]
  3. DILTIAZEM [Concomitant]
  4. OMEPRAZOLE [Concomitant]
  5. MS CONTIN [Concomitant]
  6. LEXAPRO [Concomitant]
  7. FUROSEMIDE [Concomitant]
  8. POTASSIUM [Concomitant]
  9. ZOLPIDEM [Concomitant]
  10. BENEFIBER [Concomitant]
  11. DOCUSATE [Concomitant]
  12. BISACODYL [Concomitant]
  13. CELEBREX [Concomitant]
  14. LACTULOSE [Concomitant]
  15. OXYCODONE [Concomitant]
  16. ACETAMINOPHEN [Concomitant]
  17. LASIX [Concomitant]
  18. ALBUTEROL [Concomitant]
  19. PRILOSEC [Concomitant]
  20. CIPROFLOXACIN HYDROCHLORIDE [Concomitant]
  21. NALOXONE HYDROCHLORIDE [Concomitant]
  22. LORAZEPAM [Concomitant]
  23. AVELOX [Concomitant]
  24. PERCOCET [Concomitant]
  25. PANTOPRAZOLE [Concomitant]
  26. MIRALAX [Concomitant]
  27. TEMAZEPAM [Concomitant]

REACTIONS (82)
  - Osteonecrosis of jaw [Unknown]
  - Actinomycosis [Unknown]
  - Gangrene [Unknown]
  - Bone disorder [Unknown]
  - Dental caries [Unknown]
  - Osteonecrosis [Unknown]
  - Peripheral vascular disorder [Unknown]
  - Vasculitis [Unknown]
  - Skin lesion [Unknown]
  - Spinal compression fracture [Unknown]
  - Osteoarthritis [Unknown]
  - Diarrhoea [Unknown]
  - Atelectasis [Unknown]
  - Scoliosis [Unknown]
  - Rectal adenoma [Unknown]
  - Rectal prolapse [Unknown]
  - Actinic elastosis [Unknown]
  - Actinic keratosis [Unknown]
  - Haemorrhoids [Unknown]
  - Exostosis [Unknown]
  - Urinary tract infection [Unknown]
  - Diaphragmatic disorder [Unknown]
  - Gastroenteritis [Unknown]
  - Acute respiratory failure [Unknown]
  - Oedema peripheral [Unknown]
  - Venous thrombosis [Unknown]
  - Hypertension [Unknown]
  - Osteopenia [Unknown]
  - Leukocytosis [Unknown]
  - Pneumonia [Recovering/Resolving]
  - Hypoxia [Unknown]
  - Dyspnoea [Unknown]
  - Polycystic liver disease [Unknown]
  - Renal failure [Unknown]
  - Nephrolithiasis [Unknown]
  - Left ventricular hypertrophy [Unknown]
  - Aortic valve sclerosis [Unknown]
  - Mitral valve sclerosis [Unknown]
  - Chest pain [Recovering/Resolving]
  - Hyperglycaemia [Unknown]
  - Clostridium difficile colitis [Unknown]
  - Diastolic dysfunction [Unknown]
  - Hypokalaemia [Unknown]
  - Electrolyte imbalance [Unknown]
  - Failure to thrive [Unknown]
  - Dysphagia [Unknown]
  - Metastasis [Unknown]
  - Asthenia [Unknown]
  - Malnutrition [Unknown]
  - Depression [Unknown]
  - Dysarthria [Unknown]
  - Anaemia [Unknown]
  - Pain in extremity [Unknown]
  - Skin ulcer [Unknown]
  - Osteomyelitis [Unknown]
  - Tooth fracture [Unknown]
  - Aortic aneurysm [Unknown]
  - Joint effusion [Unknown]
  - Embolism [Unknown]
  - Pharyngitis [Unknown]
  - Hypercalcaemia [Unknown]
  - Cough [Unknown]
  - Insomnia [Unknown]
  - Rhinitis [Unknown]
  - Cellulitis [Unknown]
  - Type 2 diabetes mellitus [Unknown]
  - Bronchitis [Unknown]
  - Hypotension [Unknown]
  - Fungal infection [Unknown]
  - Anxiety [Unknown]
  - Dementia [Unknown]
  - Constipation [Unknown]
  - Onychomycosis [Unknown]
  - Gait disturbance [Unknown]
  - Neuropathy peripheral [Unknown]
  - Peripheral arterial occlusive disease [Unknown]
  - Vision blurred [Unknown]
  - Pedal pulse abnormal [Unknown]
  - Cardiomegaly [Unknown]
  - Osteoporosis [Unknown]
  - Rib fracture [Unknown]
  - Bone deformity [Unknown]
